FAERS Safety Report 14764262 (Version 1)
Quarter: 2018Q2

REPORT INFORMATION
  Report Type: Spontaneous
  Country: PT (occurrence: PT)
  Receive Date: 20180416
  Receipt Date: 20180416
  Transmission Date: 20180711
  Serious: Yes (Hospitalization)
  Sender: FDA-Public Use
  Company Number: PT-TEVA-2018-PT-882087

PATIENT
  Age: 15 Year
  Sex: Female

DRUGS (1)
  1. DESMOPRESSIN [Suspect]
     Active Substance: DESMOPRESSIN
     Route: 065

REACTIONS (3)
  - Hyponatraemia [Recovered/Resolved]
  - Water intoxication [Recovered/Resolved]
  - Altered state of consciousness [Recovered/Resolved]
